FAERS Safety Report 12613765 (Version 1)
Quarter: 2016Q3

REPORT INFORMATION
  Report Type: Spontaneous
  Country: US (occurrence: US)
  Receive Date: 20160802
  Receipt Date: 20160802
  Transmission Date: 20161109
  Serious: No
  Sender: FDA-Public Use
  Company Number: US-BRISTOL-MYERS SQUIBB COMPANY-BMS-2016-063220

PATIENT
  Sex: Male

DRUGS (1)
  1. KENALOG IN ORABASE [Suspect]
     Active Substance: TRIAMCINOLONE ACETONIDE
     Indication: PRODUCT USED FOR UNKNOWN INDICATION
     Dosage: 1 MG/G, UNK
     Route: 065

REACTIONS (2)
  - Stomatitis [Unknown]
  - Ulcer [Unknown]
